FAERS Safety Report 6342285-0 (Version None)
Quarter: 2009Q3

REPORT INFORMATION
  Report Type: 
  Country: None (occurrence: None)
  Receive Date: 20090907
  Receipt Date: 20090828
  Transmission Date: 20100115
  Serious: Yes (Hospitalization)
  Sender: FDA-Public Use
  Company Number: US-BIOGENIDEC-2008BI031924

PATIENT
  Age: 54 Year
  Sex: Male
  Weight: 112 kg

DRUGS (4)
  1. TYSABRI [Suspect]
     Indication: MULTIPLE SCLEROSIS
     Route: 042
     Dates: start: 20080709, end: 20080801
  2. TYSABRI [Suspect]
     Route: 042
     Dates: start: 20080902, end: 20081027
  3. FENTANYL TRANSDERMAL SYSTEM [Concomitant]
  4. VICODIN [Concomitant]

REACTIONS (26)
  - ABASIA [None]
  - ABDOMINAL DISCOMFORT [None]
  - ABDOMINAL PAIN UPPER [None]
  - ATRIAL FIBRILLATION [None]
  - BACTERIAL SEPSIS [None]
  - CANDIDIASIS [None]
  - CHEST PAIN [None]
  - DEHYDRATION [None]
  - DYSPNOEA [None]
  - DYSSTASIA [None]
  - FALL [None]
  - FATIGUE [None]
  - GASTROOESOPHAGEAL REFLUX DISEASE [None]
  - GLIOSIS [None]
  - HEART RATE DECREASED [None]
  - HEART RATE INCREASED [None]
  - HERNIA [None]
  - HYPERTENSION [None]
  - INFLUENZA LIKE ILLNESS [None]
  - MULTIPLE SCLEROSIS RELAPSE [None]
  - PNEUMONIA [None]
  - POLLAKIURIA [None]
  - TACHYCARDIA [None]
  - TREMOR [None]
  - TUNNEL VISION [None]
  - UROSEPSIS [None]
